FAERS Safety Report 11410842 (Version 2)
Quarter: 2015Q3

REPORT INFORMATION
  Report Type: Spontaneous
  Country: US (occurrence: US)
  Receive Date: 20150821
  Receipt Date: 20150831
  Transmission Date: 20151125
  Serious: No
  Sender: FDA-Public Use
  Company Number: US-ELI_LILLY_AND_COMPANY-US200910003819

PATIENT
  Age: 65 Year
  Sex: Female

DRUGS (18)
  1. DICYCLOMINE [Concomitant]
     Active Substance: DICYCLOMINE HYDROCHLORIDE
  2. HYDROXYCHLOROQUINE [Concomitant]
     Active Substance: HYDROXYCHLOROQUINE
  3. CYMBALTA [Suspect]
     Active Substance: DULOXETINE HYDROCHLORIDE
  4. CILOSTAZOL. [Concomitant]
     Active Substance: CILOSTAZOL
  5. AMLODIPINE BESYLATE W/BENAZEPRIL [Concomitant]
  6. METFORMIN [Concomitant]
     Active Substance: METFORMIN HYDROCHLORIDE
  7. HUMULIN N [Suspect]
     Active Substance: INSULIN HUMAN
     Dosage: 37 U, EACH EVENING
     Dates: start: 20091001
  8. CAPADEX [Concomitant]
  9. GLIPIZIDE. [Concomitant]
     Active Substance: GLIPIZIDE
  10. TRAZODONE [Concomitant]
     Active Substance: TRAZODONE HYDROCHLORIDE
  11. VICODIN [Concomitant]
     Active Substance: ACETAMINOPHEN\HYDROCODONE BITARTRATE
  12. ZETIA [Concomitant]
     Active Substance: EZETIMIBE
  13. GABAPENTINE [Concomitant]
     Active Substance: GABAPENTIN
  14. CRESTOR [Concomitant]
     Active Substance: ROSUVASTATIN CALCIUM
  15. METHOCARBAMOL. [Concomitant]
     Active Substance: METHOCARBAMOL
  16. INDOMETHACIN. [Concomitant]
     Active Substance: INDOMETHACIN
  17. ISOSORBIDE. [Concomitant]
     Active Substance: ISOSORBIDE
  18. MIRAPEX [Concomitant]
     Active Substance: PRAMIPEXOLE DIHYDROCHLORIDE

REACTIONS (2)
  - Blood glucose increased [Recovered/Resolved]
  - Incorrect dose administered [Recovered/Resolved]

NARRATIVE: CASE EVENT DATE: 20091014
